FAERS Safety Report 5368341-1 (Version None)
Quarter: 2007Q2

REPORT INFORMATION
  Report Type: 
  Country: None (occurrence: None)
  Receive Date: 20070622
  Receipt Date: 20070622
  Transmission Date: 20071010
  Serious: Yes (Other)
  Sender: FDA-Public Use
  Company Number: None

PATIENT
  Age: 49 Year
  Sex: Female
  Weight: 68.9467 kg

DRUGS (2)
  1. TIMOLOL MALEATE [Suspect]
     Indication: ABNORMAL SENSATION IN EYE
     Dosage: 1 DROP IN RIGHT EYE TWICE DAYLY OPHTHALMIC
     Route: 047
     Dates: start: 20070512, end: 20070519
  2. TIMOLOL MALEATE [Suspect]
     Indication: HERPES ZOSTER OPHTHALMIC
     Dosage: 1 DROP IN RIGHT EYE TWICE DAYLY OPHTHALMIC
     Route: 047
     Dates: start: 20070512, end: 20070519

REACTIONS (5)
  - ERYTHEMA [None]
  - GAIT DISTURBANCE [None]
  - GOUT [None]
  - PAIN [None]
  - SWELLING [None]
